FAERS Safety Report 8011373-5 (Version None)
Quarter: 2011Q4

REPORT INFORMATION
  Report Type: 
  Country: None (occurrence: None)
  Receive Date: 20111222
  Receipt Date: 20111214
  Transmission Date: 20120403
  Serious: Yes (Hospitalization, Other)
  Sender: FDA-Public Use
  Company Number: NSR_00327_2011

PATIENT
  Age: 67 Year
  Sex: Male

DRUGS (1)
  1. LAMOTRIGINE [Suspect]
     Indication: EPILEPSY
     Dosage: 300 MG QD, 200 MG QD, 100 MG QD, 100 MG QD

REACTIONS (7)
  - METABOLIC MYOPATHY [None]
  - ASTHENIA [None]
  - DIZZINESS [None]
  - VENTRICULAR EXTRASYSTOLES [None]
  - HYPERTROPHIC CARDIOMYOPATHY [None]
  - DYSPNOEA [None]
  - SYNCOPE [None]
